FAERS Safety Report 4921026-5 (Version None)
Quarter: 2006Q1

REPORT INFORMATION
  Report Type: 
  Country: None (occurrence: None)
  Receive Date: 20060113
  Receipt Date: 20050920
  Transmission Date: 20060701
  Serious: No
  Sender: FDA-Public Use
  Company Number: 2005SP003121

PATIENT
  Age: 51 Year
  Sex: Female
  Weight: 108.8633 kg

DRUGS (2)
  1. LUNESTA [Suspect]
     Indication: MIDDLE INSOMNIA
     Dosage: 2 MG HS ORAL
     Route: 048
     Dates: start: 20050916, end: 20050918
  2. GLUCOPHAGE [Concomitant]

REACTIONS (1)
  - DYSGEUSIA [None]
